FAERS Safety Report 5032473-8 (Version None)
Quarter: 2006Q2

REPORT INFORMATION
  Report Type: 
  Country: None (occurrence: None)
  Receive Date: 20060622
  Receipt Date: 20060425
  Transmission Date: 20061013
  Serious: Yes (Hospitalization, Other)
  Sender: FDA-Public Use
  Company Number: PHMT2006CA01155

PATIENT
  Age: 55 Year
  Sex: Female
  Weight: 72.562 kg

DRUGS (17)
  1. COMBIVENT                               /GFR/ [Concomitant]
  2. VENTOLIN [Concomitant]
  3. FLOVENT [Concomitant]
  4. VALPROIC ACID [Concomitant]
     Dosage: 500 MG, BID
  5. CLOPIXOL                           /00876701/ [Concomitant]
  6. SYNTHROID [Concomitant]
  7. PROCYCLIDINE HYDROCHLORIDE 2MG TAB [Concomitant]
  8. OXYBUTYNIN [Concomitant]
  9. MOBIC [Concomitant]
  10. CLOBAZAM [Concomitant]
  11. ENTERIC ASPIRIN [Concomitant]
     Dosage: 81 MG, UNK
  12. ATENOLOL [Concomitant]
     Dosage: 50 MG, UNK
  13. NITRO-SPRAY [Concomitant]
  14. NICOTINE [Concomitant]
     Route: 062
  15. PLAVIX [Concomitant]
     Dosage: 15 MG, QD
  16. LIPITOR                                 /NET/ [Concomitant]
  17. CLOZARIL [Suspect]
     Indication: SCHIZOPHRENIA
     Dosage: 112.5 MG QD
     Route: 048
     Dates: start: 20010101

REACTIONS (7)
  - COGNITIVE DETERIORATION [None]
  - DISABILITY [None]
  - FALL [None]
  - MYOCARDIAL INFARCTION [None]
  - SUBDURAL HAEMATOMA [None]
  - SURGERY [None]
  - WEIGHT INCREASED [None]
